FAERS Safety Report 7389478-1 (Version None)
Quarter: 2011Q2

REPORT INFORMATION
  Report Type: 
  Country: None (occurrence: None)
  Receive Date: 20110401
  Receipt Date: 20110324
  Transmission Date: 20111010
  Serious: Yes (Hospitalization)
  Sender: FDA-Public Use
  Company Number: NL-MEDIMMUNE-MEDI-0012952

PATIENT
  Sex: Female
  Weight: 6.116 kg

DRUGS (2)
  1. SYNAGIS [Suspect]
     Route: 030
     Dates: start: 20110314, end: 20110314
  2. SYNAGIS [Suspect]
     Route: 030
     Dates: start: 20101027, end: 20110214

REACTIONS (5)
  - DYSPNOEA [None]
  - OLIGODIPSIA [None]
  - COUGH [None]
  - PRODUCTIVE COUGH [None]
  - RESPIRATORY SYNCYTIAL VIRUS TEST POSITIVE [None]
